FAERS Safety Report 15096173 (Version 1)
Quarter: 2018Q3

REPORT INFORMATION
  Report Type: Spontaneous
  Country: US (occurrence: US)
  Receive Date: 20180702
  Receipt Date: 20180702
  Transmission Date: 20181010
  Serious: Yes (Other)
  Sender: FDA-Public Use
  Company Number: PHHY2018US027028

PATIENT
  Age: 49 Year
  Sex: Female

DRUGS (3)
  1. FOLINIC ACID [Concomitant]
     Active Substance: LEUCOVORIN
     Indication: METASTASES TO OVARY
     Dosage: UNK
     Route: 065
  2. OXALIPLATIN. [Suspect]
     Active Substance: OXALIPLATIN
     Indication: METASTASES TO OVARY
     Dosage: UNK
     Route: 065
  3. 5 FLUORO URACIL [Concomitant]
     Active Substance: FLUOROURACIL
     Indication: METASTASES TO OVARY
     Dosage: UNK
     Route: 065

REACTIONS (1)
  - Neuropathy peripheral [Unknown]
